FAERS Safety Report 11130664 (Version 1)
Quarter: 2015Q2

REPORT INFORMATION
  Report Type: Spontaneous
  Country: US (occurrence: None)
  Receive Date: 20150520
  Receipt Date: 20150520
  Transmission Date: 20150821
  Serious: Yes (Life-Threatening)
  Sender: FDA-Public Use
  Company Number: ONY-2015-003

PATIENT
  Age: 3 Day
  Weight: 1.6 kg

DRUGS (1)
  1. INFASURF [Suspect]
     Active Substance: CALFACTANT

REACTIONS (2)
  - Endotracheal intubation complication [None]
  - Bradycardia [None]

NARRATIVE: CASE EVENT DATE: 20150514
